FAERS Safety Report 15037282 (Version 1)
Quarter: 2018Q2

REPORT INFORMATION
  Report Type: Spontaneous
  Country: US (occurrence: US)
  Receive Date: 20180530
  Receipt Date: 20180530
  Transmission Date: 20180711
  Serious: No
  Sender: FDA-Public Use
  Company Number: None

PATIENT
  Age: 34 Year
  Sex: Female

DRUGS (3)
  1. TACROLIMUS CAP 1MG [Suspect]
     Active Substance: TACROLIMUS
  2. VALGANCICLOVIR. [Concomitant]
     Active Substance: VALGANCICLOVIR
  3. MYCOPHENOLATE [Concomitant]
     Active Substance: MYCOPHENOLIC ACID

REACTIONS (1)
  - Alopecia [None]

NARRATIVE: CASE EVENT DATE: 20180530
